FAERS Safety Report 24852241 (Version 3)
Quarter: 2025Q1

REPORT INFORMATION
  Report Type: Spontaneous
  Country: US (occurrence: US)
  Receive Date: 20250116
  Receipt Date: 20250122
  Transmission Date: 20250408
  Serious: No
  Sender: SANOFI AVENTIS
  Company Number: US-SA-2025SA013572

PATIENT
  Sex: Female
  Weight: 49.8 kg

DRUGS (2)
  1. DUPIXENT [Suspect]
     Active Substance: DUPILUMAB
     Indication: Illness
     Dosage: 300 MG, QOW
     Route: 058
  2. METHENAMINE HIPPURATE [Concomitant]
     Active Substance: METHENAMINE HIPPURATE

REACTIONS (2)
  - Urinary tract infection [Unknown]
  - Urine odour abnormal [Unknown]
